FAERS Safety Report 10309434 (Version 2)
Quarter: 2014Q3

REPORT INFORMATION
  Report Type: Spontaneous
  Country: JP (occurrence: JP)
  Receive Date: 20140716
  Receipt Date: 20140716
  Transmission Date: 20150326
  Serious: Yes (Life-Threatening, Hospitalization, Other)
  Sender: FDA-Public Use
  Company Number: JP-009507513-1406JPN003458

PATIENT
  Age: 80 Year
  Sex: Male
  Weight: 47 kg

DRUGS (21)
  1. ESLAX INTRAVENOUS 25MG/2.5ML [Suspect]
     Active Substance: ROCURONIUM BROMIDE
     Dosage: 10 MG, ONCE
     Route: 042
     Dates: start: 20140528, end: 20140528
  2. BRIDION INTRAVENOUS 200MG [Suspect]
     Active Substance: SUGAMMADEX
     Indication: ANAESTHESIA PROCEDURE
     Dosage: 120 MG, ONCE A DAY
     Route: 042
     Dates: start: 20140528, end: 20140528
  3. PROPOFOL. [Suspect]
     Active Substance: PROPOFOL
     Indication: ANAESTHESIA PROCEDURE
     Dosage: 80 MG, QD
     Route: 042
     Dates: start: 20140528, end: 20140528
  4. ESLAX INTRAVENOUS 25MG/2.5ML [Suspect]
     Active Substance: ROCURONIUM BROMIDE
     Indication: NEUROMUSCULAR BLOCKADE REVERSAL
     Dosage: 30 MG, ONCE
     Route: 042
     Dates: start: 20140528, end: 20140528
  5. ULTIVA [Suspect]
     Active Substance: REMIFENTANIL HYDROCHLORIDE
     Indication: ANAESTHESIA PROCEDURE
     Dosage: DAILY DOSAGE UNKNOWN, MAINTAINED AT 0.1 MG ONLY DURING SURGERY
     Route: 042
     Dates: start: 20140528, end: 20140528
  6. ANAPEINE [Suspect]
     Active Substance: ROPIVACAINE HYDROCHLORIDE
     Indication: POSTOPERATIVE ANALGESIA
  7. ESLAX INTRAVENOUS 25MG/2.5ML [Suspect]
     Active Substance: ROCURONIUM BROMIDE
     Dosage: 20 MG, ONCE
     Route: 042
     Dates: start: 20140528, end: 20140528
  8. ESLAX INTRAVENOUS 25MG/2.5ML [Suspect]
     Active Substance: ROCURONIUM BROMIDE
     Dosage: 10 MG, ONCE
     Route: 042
     Dates: start: 20140528, end: 20140528
  9. ESLAX INTRAVENOUS 25MG/2.5ML [Suspect]
     Active Substance: ROCURONIUM BROMIDE
     Dosage: 10 MG, ONCE
     Route: 042
     Dates: start: 20140528, end: 20140528
  10. ESLAX INTRAVENOUS 25MG/2.5ML [Suspect]
     Active Substance: ROCURONIUM BROMIDE
     Dosage: 20 MG, ONCE
     Route: 042
     Dates: start: 20140528, end: 20140528
  11. FENTANYL CITRATE. [Suspect]
     Active Substance: FENTANYL CITRATE
     Dosage: 50 MICROGRAM ONCE A DAY
     Route: 042
     Dates: start: 20140528, end: 20140528
  12. FENTANYL CITRATE. [Suspect]
     Active Substance: FENTANYL CITRATE
     Indication: ANAESTHESIA PROCEDURE
     Dosage: 200 MCG, DIVIDED DOSE FREQUENCY UNKNOWN
     Route: 008
     Dates: start: 20140528, end: 20140528
  13. ANAPEINE [Suspect]
     Active Substance: ROPIVACAINE HYDROCHLORIDE
     Indication: ANAESTHESIA PROCEDURE
     Dosage: 88ML,AT A RATE OF 3 ML/H
     Route: 008
     Dates: start: 20140528, end: 20140528
  14. DESFLURANE [Suspect]
     Active Substance: DESFLURANE
     Indication: ANAESTHESIA PROCEDURE
     Dosage: DAILY DOSAGE UNKNOWN, MAINTAINED AT 3.5%
     Route: 055
     Dates: start: 20140528, end: 20140528
  15. ESLAX INTRAVENOUS 25MG/2.5ML [Suspect]
     Active Substance: ROCURONIUM BROMIDE
     Indication: ANAESTHESIA PROCEDURE
     Dosage: 40 MG, ONCE
     Route: 042
     Dates: start: 20140528, end: 20140528
  16. ESLAX INTRAVENOUS 25MG/2.5ML [Suspect]
     Active Substance: ROCURONIUM BROMIDE
     Dosage: 10 MG, ONCE
     Route: 042
     Dates: start: 20140528, end: 20140528
  17. ESLAX INTRAVENOUS 25MG/2.5ML [Suspect]
     Active Substance: ROCURONIUM BROMIDE
     Dosage: 20 MG, ONCE
     Route: 042
     Dates: start: 20140528, end: 20140528
  18. FENTANYL CITRATE. [Suspect]
     Active Substance: FENTANYL CITRATE
     Indication: POSTOPERATIVE ANALGESIA
  19. ESLAX INTRAVENOUS 25MG/2.5ML [Suspect]
     Active Substance: ROCURONIUM BROMIDE
     Dosage: 10 MG, ONCE
     Route: 042
     Dates: start: 20140528, end: 20140528
  20. ESLAX INTRAVENOUS 25MG/2.5ML [Suspect]
     Active Substance: ROCURONIUM BROMIDE
     Dosage: 20 MG, ONCE
     Route: 042
     Dates: start: 20140528, end: 20140528
  21. FENTANYL CITRATE. [Suspect]
     Active Substance: FENTANYL CITRATE
     Indication: ANAESTHESIA PROCEDURE
     Dosage: 150 MICROGRAM, ONCE A DAY
     Route: 042
     Dates: start: 20140528, end: 20140528

REACTIONS (5)
  - Endotracheal intubation [Recovered/Resolved]
  - Depressed level of consciousness [Recovered/Resolved]
  - Overdose [Unknown]
  - Haemoptysis [Unknown]
  - Respiratory arrest [Recovered/Resolved]

NARRATIVE: CASE EVENT DATE: 20140528
